FAERS Safety Report 9551055 (Version 3)
Quarter: 2014Q2

REPORT INFORMATION
  Report Type: Spontaneous
  Country: BE (occurrence: BE)
  Receive Date: 20130925
  Receipt Date: 20140610
  Transmission Date: 20141212
  Serious: Yes (Hospitalization, Other)
  Sender: FDA-Public Use
  Company Number: BE-AMGEN-BELSP2013060724

PATIENT
  Age: 1 Year
  Sex: Female
  Weight: 10 kg

DRUGS (1)
  1. MIMPARA [Suspect]
     Indication: PRODUCT USED FOR UNKNOWN INDICATION
     Dosage: 30 MG, UNK
     Route: 048

REACTIONS (10)
  - Accidental exposure to product by child [Recovered/Resolved]
  - Blood calcium decreased [Unknown]
  - Toxicity to various agents [Unknown]
  - Lethargy [Unknown]
  - Somnolence [Unknown]
  - Crying [Unknown]
  - Agitation [Unknown]
  - Vomiting [Unknown]
  - Blood lactic acid increased [Unknown]
  - Blood pH decreased [Unknown]
